FAERS Safety Report 7395394-1 (Version None)
Quarter: 2011Q2

REPORT INFORMATION
  Report Type: 
  Country: None (occurrence: None)
  Receive Date: 20110405
  Receipt Date: 20110308
  Transmission Date: 20111010
  Serious: Yes (Other)
  Sender: FDA-Public Use
  Company Number: PHHO2011HU04087

PATIENT
  Sex: Male

DRUGS (2)
  1. SOMATROPIN [Suspect]
     Indication: SMALL FOR DATES BABY
     Dosage: UNK
     Route: 058
     Dates: start: 20080701, end: 20090301
  2. SOMATROPIN [Suspect]
     Dosage: UNK
     Route: 058
     Dates: start: 20080701, end: 20090301

REACTIONS (1)
  - DRUG DEPENDENCE [None]
